FAERS Safety Report 7684130-7 (Version None)
Quarter: 2011Q3

REPORT INFORMATION
  Report Type: 
  Country: None (occurrence: None)
  Receive Date: 20110815
  Receipt Date: 20110812
  Transmission Date: 20111222
  Serious: Yes (Life-Threatening, Hospitalization)
  Sender: FDA-Public Use
  Company Number: US-GILEAD-2011-0041658

PATIENT
  Sex: Female
  Weight: 93.978 kg

DRUGS (19)
  1. HUMULIN INSULIN [Concomitant]
     Route: 058
     Dates: start: 20091008
  2. LASIX [Concomitant]
     Dates: start: 20070914
  3. RANEXA [Suspect]
     Indication: ANGINA PECTORIS
     Route: 048
     Dates: start: 20110705, end: 20110711
  4. ADVAIR DISKUS 100/50 [Concomitant]
  5. LEXAPRO [Concomitant]
  6. RANEXA [Suspect]
  7. TOPROL-XL [Concomitant]
     Dates: start: 20041029
  8. SIMVASTATIN [Suspect]
     Route: 048
     Dates: start: 20061205, end: 20110711
  9. PLAVIX [Concomitant]
     Dates: start: 20071005
  10. SPIRONOLACTONE [Concomitant]
     Dates: start: 20110609
  11. IMDUR [Concomitant]
     Dates: start: 20091028
  12. DIOVAN [Concomitant]
     Dates: start: 20091029
  13. COMBIVENT [Concomitant]
  14. AMITRIPTYLINE HCL [Concomitant]
  15. HUMALOG [Concomitant]
     Dates: start: 20080923
  16. NITROGLYCERIN [Concomitant]
  17. ASPIRIN [Concomitant]
  18. GABAPENTIN [Concomitant]
  19. ALPRAZOLAM [Concomitant]

REACTIONS (4)
  - MYALGIA [None]
  - DYSURIA [None]
  - RENAL FAILURE ACUTE [None]
  - RHABDOMYOLYSIS [None]
